FAERS Safety Report 9863247 (Version 1)
Quarter: 2014Q1

REPORT INFORMATION
  Report Type: Spontaneous
  Country: US (occurrence: US)
  Receive Date: 20140203
  Receipt Date: 20140203
  Transmission Date: 20141002
  Serious: No
  Sender: FDA-Public Use
  Company Number: US-TARO-2013P1000749

PATIENT
  Age: 46 Year
  Sex: Female
  Weight: 64.86 kg

DRUGS (3)
  1. NYSTATIN + TRIAMCINOLONE ACETONIDE CREAM USP [Suspect]
     Route: 061
     Dates: start: 201211, end: 201211
  2. NYSTATIN + TRIAMCINOLONE ACETONIDE CREAM USP [Suspect]
     Route: 061
     Dates: start: 201211, end: 201211
  3. MOTRIN [Concomitant]

REACTIONS (11)
  - Dizziness [Recovered/Resolved]
  - Diarrhoea [Recovered/Resolved]
  - Headache [Recovered/Resolved]
  - Vomiting [Recovered/Resolved]
  - Thinking abnormal [Recovered/Resolved]
  - Dysstasia [Recovered/Resolved]
  - Anxiety [Recovered/Resolved]
  - Influenza like illness [Recovered/Resolved]
  - Malaise [Recovered/Resolved]
  - Accidental exposure to product [Recovered/Resolved]
  - Impaired work ability [Recovered/Resolved]
